FAERS Safety Report 8374178-1 (Version None)
Quarter: 2012Q2

REPORT INFORMATION
  Report Type: 
  Country: None (occurrence: None)
  Receive Date: 20120521
  Receipt Date: 20120512
  Transmission Date: 20120825
  Serious: Yes (Other)
  Sender: FDA-Public Use
  Company Number: RU-GLAXOSMITHKLINE-B0802047A

PATIENT
  Sex: Female

DRUGS (2)
  1. REQUIP [Suspect]
     Indication: PRODUCT USED FOR UNKNOWN INDICATION
     Route: 048
     Dates: start: 20120115, end: 20120420
  2. LEVODOPA [Concomitant]
     Indication: PARKINSON'S DISEASE
     Dosage: 550MG PER DAY
     Route: 048

REACTIONS (4)
  - SPEECH DISORDER [None]
  - DYSPHAGIA [None]
  - IMMOBILE [None]
  - AKINESIA [None]
